FAERS Safety Report 17435188 (Version 1)
Quarter: 2020Q1

REPORT INFORMATION
  Report Type: Spontaneous
  Country: US (occurrence: US)
  Receive Date: 20200204
  Receipt Date: 20200204
  Transmission Date: 20200409
  Serious: Yes (Hospitalization)
  Sender: FDA-Public Use
  Company Number: None

PATIENT
  Age: 19 Year
  Sex: Female

DRUGS (5)
  1. FEROSUL [Concomitant]
     Active Substance: FERROUS SULFATE
  2. BUDESONIDE. [Concomitant]
     Active Substance: BUDESONIDE
  3. ESCITAOLPRAM [Concomitant]
  4. STELARA [Suspect]
     Active Substance: USTEKINUMAB
     Indication: CROHN^S DISEASE
     Dates: start: 20190507
  5. PANTOPRAZOLE [Concomitant]
     Active Substance: PANTOPRAZOLE

REACTIONS (1)
  - Ileostomy [None]

NARRATIVE: CASE EVENT DATE: 20191209
